FAERS Safety Report 20798103 (Version 1)
Quarter: 2022Q2

REPORT INFORMATION
  Report Type: Spontaneous
  Country: US (occurrence: US)
  Receive Date: 20220507
  Receipt Date: 20220507
  Transmission Date: 20220720
  Serious: Yes (Other)
  Sender: FDA-Public Use
  Company Number: US-BEH-2022145121

PATIENT
  Sex: Male

DRUGS (1)
  1. HUMAN IMMUNOGLOBULIN G [Suspect]
     Active Substance: HUMAN IMMUNOGLOBULIN G
     Indication: Axonal and demyelinating polyneuropathy
     Route: 042

REACTIONS (3)
  - Haemolytic anaemia [Unknown]
  - Product use in unapproved indication [Unknown]
  - No adverse event [Unknown]
